FAERS Safety Report 8888316 (Version 1)
Quarter: 2012Q4

REPORT INFORMATION
  Report Type: 
  Country: CH (occurrence: CH)
  Receive Date: 20121106
  Receipt Date: 20121106
  Transmission Date: 20130627
  Serious: Yes (Other)
  Sender: FDA-Public Use
  Company Number: CH-PFIZER INC-2012274094

PATIENT
  Age: 55 Year
  Sex: Female

DRUGS (3)
  1. ATORVASTATIN PFIZER [Suspect]
     Indication: PURE HYPERCHOLESTEROLAEMIA
     Dosage: UNK
     Route: 048
     Dates: start: 201203, end: 20120813
  2. BLACK COHOSH [Suspect]
     Dosage: as needed
     Route: 048
     Dates: end: 20120830
  3. HERBAL NOS [Suspect]
     Dosage: as needed
     Route: 048
     Dates: end: 20120830

REACTIONS (2)
  - Hepatocellular injury [Recovered/Resolved]
  - Pruritus [Recovered/Resolved]
